FAERS Safety Report 18323738 (Version 1)
Quarter: 2020Q3

REPORT INFORMATION
  Report Type: Spontaneous
  Country: US (occurrence: US)
  Receive Date: 20200929
  Receipt Date: 20200929
  Transmission Date: 20201103
  Serious: No
  Sender: FDA-Public Use
  Company Number: US-BTG-202000080

PATIENT
  Age: 75 Year
  Sex: Male
  Weight: 126 kg

DRUGS (1)
  1. VARITHENA [Suspect]
     Active Substance: POLIDOCANOL
     Indication: PRODUCT USED FOR UNKNOWN INDICATION
     Dosage: UNKNOWN
     Route: 065
     Dates: start: 20200407, end: 20200407

REACTIONS (5)
  - Treatment noncompliance [Unknown]
  - Therapy change [Unknown]
  - Product availability issue [Unknown]
  - Product administration interrupted [Not Recovered/Not Resolved]
  - Product quality issue [Not Recovered/Not Resolved]

NARRATIVE: CASE EVENT DATE: 20200407
